FAERS Safety Report 6273542-4 (Version None)
Quarter: 2009Q3

REPORT INFORMATION
  Report Type: 
  Country: None (occurrence: None)
  Receive Date: 20090715
  Receipt Date: 20090709
  Transmission Date: 20100115
  Serious: Yes (Death, Other)
  Sender: FDA-Public Use
  Company Number: 2009-02598

PATIENT
  Age: 56 Year
  Sex: Male

DRUGS (1)
  1. VELCADE [Suspect]
     Indication: MANTLE CELL LYMPHOMA
     Dosage: 1.3 MG/M2, INTRAVENOUS
     Route: 042

REACTIONS (3)
  - DISEASE PROGRESSION [None]
  - MANTLE CELL LYMPHOMA [None]
  - NEUROPATHY PERIPHERAL [None]
